FAERS Safety Report 4859696-2 (Version None)
Quarter: 2005Q4

REPORT INFORMATION
  Report Type: 
  Country: None (occurrence: None)
  Receive Date: 20051219
  Receipt Date: 20051117
  Transmission Date: 20060501
  Serious: Yes (Hospitalization)
  Sender: FDA-Public Use
  Company Number: PHHO2005JP18265

PATIENT
  Age: 33 Year
  Sex: Male
  Weight: 66 kg

DRUGS (9)
  1. CELLCEPT [Suspect]
     Indication: RENAL TRANSPLANT
     Dosage: 2 G, QD
     Route: 048
     Dates: start: 20040621
  2. PROGRAF [Suspect]
     Dosage: 12 MG/DAILY
     Route: 048
     Dates: start: 20050626
  3. TAKEPRON [Suspect]
     Dosage: UNK, UNK
     Dates: start: 20040701, end: 20040903
  4. BLOPRESS [Suspect]
     Route: 048
     Dates: start: 20040730, end: 20040820
  5. PREDNISOLONE [Concomitant]
     Indication: RENAL TRANSPLANT
     Dosage: UNK, UNK
     Dates: start: 20040626
  6. AMLODIPINE BESYLATE [Concomitant]
     Indication: HYPERTENSION
  7. OMEPRAL [Concomitant]
     Indication: ULCER
  8. SIMULECT [Suspect]
     Indication: TRANSPLANT
     Dosage: 20 MG, DAY 0
     Route: 042
     Dates: start: 20040628, end: 20040628
  9. SIMULECT [Suspect]
     Dosage: 20 MG, DAY 4
     Route: 042
     Dates: start: 20050702, end: 20050702

REACTIONS (2)
  - KIDNEY TRANSPLANT REJECTION [None]
  - WHITE BLOOD CELL COUNT DECREASED [None]
